FAERS Safety Report 7137883-0 (Version None)
Quarter: 2010Q4

REPORT INFORMATION
  Report Type: 
  Country: None (occurrence: None)
  Receive Date: 20101206
  Receipt Date: 20101126
  Transmission Date: 20110411
  Serious: Yes (Other)
  Sender: FDA-Public Use
  Company Number: PHHY2010FR80658

PATIENT
  Age: 59 Year
  Sex: Male

DRUGS (13)
  1. EXTAVIA [Suspect]
     Indication: MULTIPLE SCLEROSIS
     Dosage: 1.2 ML (300 MCG)
     Route: 058
     Dates: start: 20101124
  2. EXTAVIA [Suspect]
     Dosage: 0.6 ML, UNK
     Route: 058
     Dates: start: 20101128
  3. APROVEL [Concomitant]
     Indication: HYPERTENSION
     Dosage: UNK
  4. ESOMEPRAZOLE [Concomitant]
     Dosage: UNK
  5. TAHOR [Concomitant]
     Dosage: UNK
  6. KARDEGIC [Concomitant]
     Dosage: UNK
  7. PLAVIX [Concomitant]
     Dosage: UNK
  8. IKOREL [Concomitant]
  9. RIVOTRIL [Concomitant]
     Dosage: UNK
  10. TEGRETOL [Concomitant]
     Dosage: UNK
  11. TRANSIPEG [Concomitant]
     Dosage: UNK
  12. SECTRAL [Concomitant]
     Dosage: UNK
  13. AMLOR [Concomitant]
     Dosage: UNK

REACTIONS (6)
  - ASTHENIA [None]
  - CHILLS [None]
  - HEMIPARESIS [None]
  - HYPERHIDROSIS [None]
  - MALAISE [None]
  - MOVEMENT DISORDER [None]
